FAERS Safety Report 10049987 (Version 3)
Quarter: 2014Q2

REPORT INFORMATION
  Report Type: Spontaneous
  Country: US (occurrence: US)
  Receive Date: 20140401
  Receipt Date: 20140527
  Transmission Date: 20141212
  Serious: Yes (Other)
  Sender: FDA-Public Use
  Company Number: US-JNJFOC-20140217965

PATIENT
  Age: 39 Year
  Sex: Female
  Weight: 83.01 kg

DRUGS (3)
  1. XARELTO [Suspect]
     Indication: PULMONARY EMBOLISM
     Route: 048
  2. XARELTO [Suspect]
     Indication: PULMONARY EMBOLISM
     Route: 048
  3. DIGOXIN [Concomitant]
     Route: 065
     Dates: start: 20140218, end: 20140225

REACTIONS (4)
  - Thrombocytopenia [Unknown]
  - Urticaria [Unknown]
  - Rash [Recovering/Resolving]
  - Rash generalised [Recovering/Resolving]
